FAERS Safety Report 4832128-6 (Version None)
Quarter: 2005Q4

REPORT INFORMATION
  Report Type: 
  Country: None (occurrence: None)
  Receive Date: 20051118
  Receipt Date: 20050608
  Transmission Date: 20060501
  Serious: Yes (Hospitalization, Other)
  Sender: FDA-Public Use
  Company Number: US-MERCK-0506USA01305

PATIENT
  Age: 60 Year
  Sex: Female
  Weight: 86 kg

DRUGS (26)
  1. VIOXX [Suspect]
     Indication: OSTEOARTHRITIS
     Route: 048
     Dates: start: 20000101, end: 20041011
  2. LOTENSIN [Concomitant]
     Indication: HYPERTENSION
     Route: 065
  3. LIPITOR [Concomitant]
     Indication: BLOOD CHOLESTEROL INCREASED
     Route: 065
     Dates: start: 19800101
  4. DARVOCET-N 100 [Concomitant]
     Indication: BACK PAIN
     Route: 065
     Dates: start: 19800101
  5. PREMARIN [Concomitant]
     Indication: HORMONE REPLACEMENT THERAPY
     Route: 065
     Dates: start: 19880101, end: 20020101
  6. TRICOR [Concomitant]
     Indication: BLOOD TRIGLYCERIDES INCREASED
     Route: 065
  7. NEURONTIN [Concomitant]
     Indication: MUSCLE SPASMS
     Route: 065
  8. CYCLOBENZAPRINE HYDROCHLORIDE [Concomitant]
     Indication: MUSCLE SPASMS
     Route: 065
  9. TOPROL-XL [Concomitant]
     Indication: HYPERTENSION
     Route: 065
  10. FOLIC ACID [Concomitant]
     Route: 065
  11. PROTONIX [Concomitant]
     Indication: GASTROOESOPHAGEAL REFLUX DISEASE
     Route: 065
  12. TESSALON [Concomitant]
     Indication: UPPER RESPIRATORY TRACT CONGESTION
     Route: 065
  13. TESSALON [Concomitant]
     Indication: COUGH
     Route: 065
  14. LUMIGAN [Concomitant]
     Indication: GLAUCOMA
     Route: 065
  15. COMBIVENT [Concomitant]
     Indication: ASTHMA
     Route: 065
  16. ALBUTEROL [Concomitant]
     Indication: ASTHMA
     Route: 065
  17. FLONASE [Concomitant]
     Indication: HYPERSENSITIVITY
     Route: 065
  18. AMMONIUM LACTATE [Concomitant]
     Indication: DRY SKIN
     Route: 065
  19. LANTUS [Concomitant]
     Indication: DIABETES MELLITUS
     Route: 065
  20. VITAMIN D (UNSPECIFIED) AND CALCIUM (UNSPECIFIED) [Concomitant]
     Indication: OSTEOPENIA
     Route: 065
  21. CENTURY SENIOR VITAMINS [Concomitant]
     Route: 065
  22. CLARINEX [Concomitant]
     Indication: SINUS CONGESTION
     Route: 065
  23. ADVAIR DISKUS 100/50 [Concomitant]
     Indication: ASTHMA
     Route: 065
  24. PROPOXYPHENE HYDROCHLORIDE [Concomitant]
     Indication: PAIN
     Route: 065
  25. ZETIA [Concomitant]
     Indication: BLOOD CHOLESTEROL INCREASED
     Route: 065
  26. CYANOCOBALAMIN [Concomitant]
     Route: 065

REACTIONS (8)
  - ANGIOPATHY [None]
  - CAROTID ARTERY STENOSIS [None]
  - DEPRESSION [None]
  - FIBROMYALGIA [None]
  - GASTROOESOPHAGEAL REFLUX DISEASE [None]
  - MYOCARDIAL INFARCTION [None]
  - SLEEP APNOEA SYNDROME [None]
  - THYROID DISORDER [None]
